FAERS Safety Report 7242923-4 (Version None)
Quarter: 2011Q1

REPORT INFORMATION
  Report Type: 
  Country: None (occurrence: None)
  Receive Date: 20110125
  Receipt Date: 20110112
  Transmission Date: 20110831
  Serious: Yes (Hospitalization, Other)
  Sender: FDA-Public Use
  Company Number: US-ELI_LILLY_AND_COMPANY-US201101003059

PATIENT
  Age: 33 Year
  Sex: Female

DRUGS (10)
  1. ZYPREXA [Suspect]
     Indication: DEPRESSION
     Dosage: 20 MG, DAILY (1/D)
     Dates: start: 20030101
  2. ZYPREXA [Suspect]
     Dosage: 20 MG, 4/D
     Dates: start: 20070101
  3. ZYPREXA ZYDIS [Suspect]
     Dosage: 20 MG, 2/D
     Dates: start: 20090201, end: 20090601
  4. ZYPREXA ZYDIS [Suspect]
     Dosage: 20 MG, 3/D
     Dates: start: 20090601
  5. LEVOXYL [Concomitant]
     Dosage: 175 UG, UNK
  6. ZYPREXA [Suspect]
     Dosage: 20 MG, 2/D
  7. ZYPREXA [Suspect]
     Dosage: 20 MG, 3/D
     Dates: start: 20060101
  8. ZYPREXA [Suspect]
     Dosage: 20 MG, 3/D
     Dates: start: 20080201, end: 20081001
  9. ZYPREXA ZYDIS [Suspect]
     Dosage: 20 MG, 4/D
     Dates: start: 20090801
  10. ZYPREXA ZYDIS [Suspect]
     Indication: DEPRESSION
     Dosage: 60 MG, DAILY (1/D)

REACTIONS (12)
  - INTENTIONAL DRUG MISUSE [None]
  - THYROID FUNCTION TEST ABNORMAL [None]
  - CONSTIPATION [None]
  - OFF LABEL USE [None]
  - FATIGUE [None]
  - BLOOD THYROID STIMULATING HORMONE DECREASED [None]
  - DRUG INEFFECTIVE [None]
  - BLOOD PROLACTIN INCREASED [None]
  - THYROID DISORDER [None]
  - FAECALOMA [None]
  - WEIGHT INCREASED [None]
  - OVERDOSE [None]
